FAERS Safety Report 4270018-0 (Version None)
Quarter: 2004Q1

REPORT INFORMATION
  Report Type: 
  Country: None (occurrence: None)
  Receive Date: 20040114
  Receipt Date: 20021031
  Transmission Date: 20041129
  Serious: No
  Sender: FDA-Public Use
  Company Number: US-GLAXOSMITHKLINE-A0385287A

PATIENT
  Age: 52 Year
  Sex: Male

DRUGS (5)
  1. WELLBUTRIN [Suspect]
     Dosage: 150MG TWICE PER DAY
     Route: 048
     Dates: start: 19950101
  2. WELLBUTRIN [Suspect]
     Dosage: 150MG TWICE PER DAY
     Route: 048
  3. ZOLOFT [Concomitant]
     Dosage: 12.5MG ALTERNATE DAYS
     Dates: end: 20030101
  4. TENORMIN [Concomitant]
  5. NAPROSYN [Concomitant]

REACTIONS (7)
  - DIAPHRAGMALGIA [None]
  - DYSTONIA [None]
  - FORMICATION [None]
  - HYPOAESTHESIA [None]
  - MUSCLE CRAMP [None]
  - TENSION [None]
  - WEIGHT INCREASED [None]
